FAERS Safety Report 5565877-5 (Version None)
Quarter: 2007Q4

REPORT INFORMATION
  Report Type: 
  Country: None (occurrence: None)
  Receive Date: 20071213
  Receipt Date: 20071128
  Transmission Date: 20080405
  Serious: Yes (Hospitalization)
  Sender: FDA-Public Use
  Company Number: 2007S1012448

PATIENT
  Age: 60 Year
  Sex: Male

DRUGS (2)
  1. DILTIAZEM [Suspect]
     Dosage: 10080 MG
  2. DOXAZOSIN MESYLATE [Suspect]
     Dosage: 40 MG

REACTIONS (3)
  - BLOOD POTASSIUM DECREASED [None]
  - BLOOD PRESSURE DECREASED [None]
  - DRUG TOXICITY [None]
